FAERS Safety Report 9830124 (Version 4)
Quarter: 2014Q1

REPORT INFORMATION
  Report Type: Spontaneous
  Country: US (occurrence: US)
  Receive Date: 20140120
  Receipt Date: 20140305
  Transmission Date: 20141002
  Serious: Yes (Other)
  Sender: FDA-Public Use
  Company Number: US-BAYER-2014-006717

PATIENT
  Age: 55 Year
  Sex: Female

DRUGS (2)
  1. CLIMARA PRO [Suspect]
     Indication: HOT FLUSH
     Dosage: 0.45MG / 0.15MG
     Route: 062
  2. CLIMARA PRO [Suspect]
     Indication: HOT FLUSH
     Dosage: 0.45MG / 0.15MG
     Route: 062

REACTIONS (9)
  - Application site irritation [Recovered/Resolved]
  - Drug ineffective [Not Recovered/Not Resolved]
  - Genital haemorrhage [Not Recovered/Not Resolved]
  - Incorrect dose administered by device [Not Recovered/Not Resolved]
  - Back pain [None]
  - Product adhesion issue [None]
  - Product quality issue [None]
  - Application site erythema [None]
  - Application site pruritus [None]
